FAERS Safety Report 9467628 (Version 2)
Quarter: 2013Q3

REPORT INFORMATION
  Report Type: Report from Study
  Country: US (occurrence: US)
  Receive Date: 20130821
  Receipt Date: 20130821
  Transmission Date: 20140515
  Serious: Yes (Disabling, Other)
  Sender: FDA-Public Use
  Company Number: PHEH2013US015246

PATIENT
  Age: 72 Year
  Sex: Female

DRUGS (16)
  1. AFINITOR [Suspect]
     Dosage: 15 MG, DAILY
     Dates: start: 20121122, end: 20130716
  2. XANAX [Suspect]
     Indication: ANXIETY
     Dosage: 1 MG
  3. XANAX [Suspect]
     Dosage: 0.5 MG
  4. NEURONTIN [Concomitant]
     Indication: NEUROPATHY PERIPHERAL
     Dosage: 400 MG, TID
  5. NEURONTIN [Concomitant]
     Dosage: 900 MG
     Dates: start: 20130705
  6. PERCOCET [Concomitant]
     Indication: PAIN
     Dosage: 1 DF, 1/2 TAB EVERY THREE HOURS
  7. VITAMIN B6 [Concomitant]
     Dosage: 100 MG, DAILY
  8. OMPRAZOLE [Concomitant]
     Dosage: 20 MG, DAILY
  9. COLACE [Concomitant]
     Dosage: 100 MG, BID
  10. RESTASIS [Concomitant]
     Dosage: 0.05 %, 1 DROP EACH EYE TWICE DAILY
  11. LEXAPRO [Concomitant]
     Dosage: 20 MG, DAILY
  12. DULCOLAX [Concomitant]
     Indication: CONSTIPATION
     Dosage: 5 MG, DAILY
     Route: 048
  13. SIMVASTATIN [Concomitant]
     Dosage: 20 MG, DAILY (HALF TABLET OF 40 MG)
     Route: 048
  14. FUROSEMIDE [Concomitant]
     Indication: SWELLING
     Dosage: 20 MG, DAILY
     Route: 048
  15. POTASSIUM CHLORIDE [Concomitant]
     Dosage: 20 MG, DAILY
     Route: 048
  16. ACYCLOVIR [Concomitant]
     Dosage: 400 MG, DAILY
     Route: 048

REACTIONS (7)
  - Disorientation [Recovering/Resolving]
  - Cognitive disorder [Recovering/Resolving]
  - Aphasia [Recovering/Resolving]
  - Drug interaction [Unknown]
  - Memory impairment [Not Recovered/Not Resolved]
  - Confusional state [Not Recovered/Not Resolved]
  - Nausea [Not Recovered/Not Resolved]
